FAERS Safety Report 9553613 (Version 1)
Quarter: 2013Q3

REPORT INFORMATION
  Report Type: Spontaneous
  Country: US (occurrence: None)
  Receive Date: 20130924
  Receipt Date: 20130924
  Transmission Date: 20140515
  Serious: No
  Sender: FDA-Public Use
  Company Number: None

PATIENT
  Age: 53 Year
  Sex: Female
  Weight: 66.23 kg

DRUGS (1)
  1. COLGATE OPTIC WHITE TOOTHPASTE [Suspect]
     Indication: DENTAL CARE

REACTIONS (2)
  - Oropharyngeal pain [None]
  - Glossodynia [None]
